FAERS Safety Report 18764410 (Version 1)
Quarter: 2021Q1

REPORT INFORMATION
  Report Type: Spontaneous
  Country: US (occurrence: US)
  Receive Date: 20210120
  Receipt Date: 20210120
  Transmission Date: 20210419
  Serious: No
  Sender: FDA-Public Use
  Company Number: US-ASTRAZENECA-2021A009090

PATIENT
  Sex: Female
  Weight: 49.9 kg

DRUGS (1)
  1. SEROQUEL [Suspect]
     Active Substance: QUETIAPINE FUMARATE
     Dosage: 1/3 ONE TIME AT BEDTIME
     Route: 048

REACTIONS (2)
  - Heart rate irregular [Unknown]
  - Nightmare [Unknown]
